FAERS Safety Report 10679764 (Version 1)
Quarter: 2014Q4

REPORT INFORMATION
  Report Type: Spontaneous
  Country: JP (occurrence: JP)
  Receive Date: 20141229
  Receipt Date: 20141229
  Transmission Date: 20150529
  Serious: Yes (Other)
  Sender: FDA-Public Use
  Company Number: JP-ASTRAZENECA-2014SE99172

PATIENT
  Sex: Male

DRUGS (4)
  1. SEROQUEL [Suspect]
     Active Substance: QUETIAPINE FUMARATE
     Dosage: 1000-1400 MG
     Route: 048
  2. SEROQUEL [Suspect]
     Active Substance: QUETIAPINE FUMARATE
     Route: 048
  3. SULPIRIDE [Concomitant]
     Active Substance: SULPIRIDE
  4. DEPROMEL [Concomitant]
     Active Substance: FLUVOXAMINE

REACTIONS (3)
  - Suicidal ideation [Not Recovered/Not Resolved]
  - Intentional overdose [Not Recovered/Not Resolved]
  - Headache [Not Recovered/Not Resolved]
